FAERS Safety Report 8425146-2 (Version None)
Quarter: 2012Q2

REPORT INFORMATION
  Report Type: 
  Country: None (occurrence: None)
  Receive Date: 20120611
  Receipt Date: 20120601
  Transmission Date: 20120825
  Serious: Yes (Death, Hospitalization, Other)
  Sender: FDA-Public Use
  Company Number: BE-BAYER-2012-054175

PATIENT
  Age: 40 Year
  Sex: Female

DRUGS (2)
  1. AVELOX [Suspect]
     Indication: BRONCHITIS
     Dosage: 400 MG, QD
     Route: 048
  2. SYMPATHOMIMETICS [Concomitant]
     Indication: BRONCHITIS

REACTIONS (2)
  - CARDIAC ARREST [None]
  - COMA [None]
